FAERS Safety Report 4938207-7 (Version None)
Quarter: 2006Q1

REPORT INFORMATION
  Report Type: 
  Country: None (occurrence: None)
  Receive Date: 20060308
  Receipt Date: 20060308
  Transmission Date: 20060701
  Serious: No
  Sender: FDA-Public Use
  Company Number: None

PATIENT
  Age: 54 Year
  Sex: Female
  Weight: 65.7716 kg

DRUGS (1)
  1. HYDROXYCHLOROQUINE SULFATE [Suspect]
     Indication: LYME DISEASE
     Dosage: 200 MG BID PO
     Route: 048
     Dates: start: 20030611, end: 20040526

REACTIONS (1)
  - DRUG INEFFECTIVE [None]
